FAERS Safety Report 14507794 (Version 1)
Quarter: 2018Q1

REPORT INFORMATION
  Report Type: Spontaneous
  Country: CN (occurrence: CN)
  Receive Date: 20180208
  Receipt Date: 20180208
  Transmission Date: 20180509
  Serious: Yes (Hospitalization)
  Sender: FDA-Public Use
  Company Number: CN-009507513-1802CHN001917

PATIENT
  Age: 1 Month
  Sex: Male
  Weight: 4.27 kg

DRUGS (6)
  1. TIENAM [Suspect]
     Active Substance: CILASTATIN SODIUM\IMIPENEM
     Indication: SEPSIS
     Dosage: 0.106 G, 4 TIMES A DAY, ROUTE OF ADMINISTRATION: PUMP INJECTION
     Dates: start: 20171113, end: 20171120
  2. ASPIRIN. [Suspect]
     Active Substance: ASPIRIN
     Indication: KAWASAKI^S DISEASE
     Dosage: 70 MG, THREE TIMES DAILY
     Route: 048
     Dates: start: 20171120, end: 20171123
  3. MANNITOL. [Suspect]
     Active Substance: MANNITOL
     Indication: BRAIN OEDEMA
     Dosage: 10.625 ML, FOUR TIMES A DAY, ROUTE OF ADMINISTRATION: PUMP INJECTION
     Dates: start: 20171113, end: 20171120
  4. PHENTOLAMINE MESYLATE. [Suspect]
     Active Substance: PHENTOLAMINE MESYLATE
     Indication: PROMOTION OF PERIPHERAL CIRCULATION
     Dosage: 4.2 MG, DAILY, ROUTE OF ADMINISTRATION: PUMP INJECTION
     Dates: start: 20171112, end: 20171121
  5. CEFUROXIME SODIUM. [Suspect]
     Active Substance: CEFUROXIME SODIUM
     Indication: PNEUMONIA
     Dosage: 0.21 G, TWICE DAILLY, ROUTE OF ADMINISTRATION: PUMP INJECTION
     Dates: start: 20171112, end: 20171113
  6. SUCRALFATE. [Suspect]
     Active Substance: SUCRALFATE
     Indication: GASTRIC DISORDER
     Dosage: 2.5 ML, THREE TIMES DAILY
     Route: 048
     Dates: start: 20171120, end: 20171124

REACTIONS (1)
  - Hepatic function abnormal [Recovering/Resolving]

NARRATIVE: CASE EVENT DATE: 20171120
